FAERS Safety Report 6435873-4 (Version None)
Quarter: 2009Q4

REPORT INFORMATION
  Report Type: 
  Country: None (occurrence: None)
  Receive Date: 20091110
  Receipt Date: 20091110
  Transmission Date: 20100525
  Serious: No
  Sender: FDA-Public Use
  Company Number: None

PATIENT
  Age: 61 Year
  Sex: Male
  Weight: 78 kg

DRUGS (1)
  1. LITHIUM CARBONATE [Suspect]
     Indication: BIPOLAR DISORDER
     Dosage: 300 MG AM PO
     Route: 048
     Dates: start: 20090827, end: 20090918

REACTIONS (6)
  - FALL [None]
  - GAIT DISTURBANCE [None]
  - POLLAKIURIA [None]
  - RENAL FAILURE ACUTE [None]
  - THIRST [None]
  - TREMOR [None]
